FAERS Safety Report 9633328 (Version 1)
Quarter: 2013Q4

REPORT INFORMATION
  Report Type: Spontaneous
  Country: US (occurrence: US)
  Receive Date: 20131021
  Receipt Date: 20131021
  Transmission Date: 20140711
  Serious: No
  Sender: FDA-Public Use
  Company Number: US-B.I. PHARMACEUTICALS,INC./RIDGEFIELD-2013-BI-31869BP

PATIENT
  Age: 82 Year
  Sex: Male
  Weight: 69 kg

DRUGS (2)
  1. SPIRIVA [Suspect]
     Indication: CHRONIC OBSTRUCTIVE PULMONARY DISEASE
     Dosage: 18 MCG
     Route: 055
     Dates: start: 201307, end: 201308
  2. COMBIVENT MDI [Concomitant]
     Indication: CHRONIC OBSTRUCTIVE PULMONARY DISEASE
     Dosage: 6 PUF
     Route: 055
     Dates: start: 2005

REACTIONS (1)
  - Dyspnoea [Recovered/Resolved]
